FAERS Safety Report 7077328-2 (Version None)
Quarter: 2010Q4

REPORT INFORMATION
  Report Type: 
  Country: None (occurrence: None)
  Receive Date: 20101101
  Receipt Date: 20101022
  Transmission Date: 20110411
  Serious: Yes (Other)
  Sender: FDA-Public Use
  Company Number: US-ASTRAZENECA-2010SE39933

PATIENT
  Age: 690 Month
  Sex: Male
  Weight: 83.9 kg

DRUGS (4)
  1. CRESTOR [Suspect]
     Route: 048
  2. CELEBREX [Concomitant]
     Route: 048
  3. PROPANOLOL HCL [Concomitant]
     Route: 048
  4. DARVOCET-N 100 [Concomitant]

REACTIONS (2)
  - DYSKINESIA [None]
  - SPEECH DISORDER [None]
